FAERS Safety Report 5113810-2 (Version None)
Quarter: 2006Q3

REPORT INFORMATION
  Report Type: 
  Country: None (occurrence: None)
  Receive Date: 20060925
  Receipt Date: 20060718
  Transmission Date: 20061208
  Serious: Yes (Other)
  Sender: FDA-Public Use
  Company Number: US-ROCHE-456176

PATIENT
  Age: 68 Year
  Sex: Male
  Weight: 90.7 kg

DRUGS (12)
  1. CELLCEPT [Suspect]
     Indication: IMMUNOSUPPRESSANT DRUG THERAPY
     Route: 048
     Dates: start: 20040224
  2. AZATHIOPRINE [Interacting]
     Indication: IMMUNOSUPPRESSANT DRUG THERAPY
     Route: 048
  3. CYCLOSPORINE [Interacting]
     Indication: IMMUNOSUPPRESSANT DRUG THERAPY
     Route: 048
  4. ZOLADEX [Interacting]
     Indication: PROSTATE CANCER
     Dosage: ONE DOSE TAKEN ONCE THAT MONTH
     Route: 065
     Dates: start: 20050215, end: 20050215
  5. ELIGARD [Interacting]
     Indication: PROSTATE CANCER
     Route: 058
     Dates: start: 20040215
  6. ELIGARD [Interacting]
     Route: 058
     Dates: start: 20050315, end: 20060623
  7. DILTIAZEM HCL [Concomitant]
     Route: 048
  8. PREVACID [Concomitant]
     Route: 048
  9. TORSEMIDE [Concomitant]
     Route: 048
  10. FLUVASTATIN [Concomitant]
     Route: 048
  11. MULTIVITAMIN NOS [Concomitant]
     Route: 048
  12. LORAZEPAM [Concomitant]
     Route: 048

REACTIONS (5)
  - CHEST PAIN [None]
  - DRUG INTERACTION [None]
  - DYSPEPSIA [None]
  - TACHYCARDIA [None]
  - VENTRICULAR EXTRASYSTOLES [None]
